FAERS Safety Report 23657214 (Version 1)
Quarter: 2024Q1

REPORT INFORMATION
  Report Type: Spontaneous
  Country: US (occurrence: US)
  Receive Date: 20240321
  Receipt Date: 20240321
  Transmission Date: 20240410
  Serious: Yes (Death)
  Sender: FDA-Public Use
  Company Number: US-TAKEDA-2024TUS025723

PATIENT
  Sex: Male
  Weight: 5.4 kg

DRUGS (1)
  1. GAMMAGARD LIQUID [Suspect]
     Active Substance: HUMAN IMMUNOGLOBULIN G
     Indication: Product used for unknown indication
     Dosage: 0.6 GRAM, 1/WEEK
     Route: 065

REACTIONS (1)
  - Transplantation complication [Fatal]
